FAERS Safety Report 14553927 (Version 1)
Quarter: 2018Q1

REPORT INFORMATION
  Report Type: Spontaneous
  Country: BE (occurrence: BE)
  Receive Date: 20180220
  Receipt Date: 20180220
  Transmission Date: 20180509
  Serious: Yes (Death, Hospitalization)
  Sender: FDA-Public Use
  Company Number: BE-OXFORD PHARMACEUTICALS, LLC-2018OXF00003

PATIENT
  Age: 72 Year
  Sex: Male

DRUGS (2)
  1. OMERPRAZOLE [Concomitant]
     Active Substance: OMEPRAZOLE
     Route: 065
  2. NABUMETONE. [Suspect]
     Active Substance: NABUMETONE
     Indication: ARTHRALGIA
     Route: 065

REACTIONS (2)
  - Drug reaction with eosinophilia and systemic symptoms [Fatal]
  - Interstitial lung disease [Fatal]
